FAERS Safety Report 5294480-X (Version None)
Quarter: 2007Q2

REPORT INFORMATION
  Report Type: 
  Country: None (occurrence: None)
  Receive Date: 20070412
  Receipt Date: 20070329
  Transmission Date: 20071010
  Serious: Yes (Other)
  Sender: FDA-Public Use
  Company Number: US-GILEAD-2007-0011799

PATIENT
  Sex: Male

DRUGS (3)
  1. EMTRICITABINE/TENOFOVIR DISOPROXIL FUMARATE [Suspect]
     Route: 064
     Dates: start: 20070307, end: 20070309
  2. ZIDOVUDINE [Concomitant]
     Route: 064
     Dates: start: 20070306, end: 20070309
  3. KALETRA [Concomitant]
     Route: 064
     Dates: start: 20070307, end: 20070309

REACTIONS (1)
  - PREMATURE BABY [None]
